FAERS Safety Report 7770030-0 (Version None)
Quarter: 2011Q3

REPORT INFORMATION
  Report Type: 
  Country: None (occurrence: None)
  Receive Date: 20110922
  Receipt Date: 20100113
  Transmission Date: 20111222
  Serious: No
  Sender: FDA-Public Use
  Company Number: US-ASTRAZENECA-2010SE29256

PATIENT
  Age: 15321 Day
  Sex: Male

DRUGS (8)
  1. SEROQUEL [Suspect]
     Indication: PSYCHOTIC DISORDER
     Dosage: 100-800 MG
     Route: 048
     Dates: start: 20010606
  2. HYOSCYAMINE SULFATE [Concomitant]
     Route: 048
     Dates: start: 20011214
  3. CHLORPHENIRAMINE MALEATE [Concomitant]
     Route: 048
     Dates: start: 20010731
  4. LOPERAMIDE HCL [Concomitant]
     Route: 048
     Dates: start: 20011214
  5. SERTRALINE HYDROCHLORIDE [Concomitant]
     Indication: DEPRESSION
     Dosage: 100-200 MG
     Route: 048
     Dates: start: 20010606
  6. LOVASTATIN [Concomitant]
     Route: 048
     Dates: start: 20010731
  7. TRAMADOL HCL [Concomitant]
     Dosage: T ONE OR TWO TABLETS TID PRN
     Dates: start: 20010531
  8. DICLOFENAC SODIUM [Concomitant]
     Route: 048
     Dates: start: 20010531

REACTIONS (3)
  - TYPE 2 DIABETES MELLITUS [None]
  - OBESITY [None]
  - GASTROINTESTINAL DISORDER [None]
